FAERS Safety Report 20907059 (Version 24)
Quarter: 2025Q1

REPORT INFORMATION
  Report Type: Report from Study
  Country: US (occurrence: US)
  Receive Date: 20220602
  Receipt Date: 20250325
  Transmission Date: 20250408
  Serious: Yes (Hospitalization, Other)
  Sender: TAKEDA
  Company Number: US-PAREXEL-2021-KAM-US003638

PATIENT
  Age: 79 Year
  Sex: Male
  Weight: 64 kg

DRUGS (52)
  1. GLASSIA [Suspect]
     Active Substance: .ALPHA.1-PROTEINASE INHIBITOR HUMAN
     Indication: Alpha-1 antitrypsin deficiency
     Dosage: UNK UNK, 1/WEEK
     Dates: start: 20190111
  2. GLASSIA [Suspect]
     Active Substance: .ALPHA.1-PROTEINASE INHIBITOR HUMAN
     Dosage: UNK UNK, 1/WEEK
     Dates: start: 20210205
  3. GLASSIA [Suspect]
     Active Substance: .ALPHA.1-PROTEINASE INHIBITOR HUMAN
     Dosage: 60 MILLIGRAM/KILOGRAM, 1/WEEK
  4. DIPHENHYDRAMINE [Concomitant]
     Active Substance: DIPHENHYDRAMINE
  5. ALBUTEROL SULFATE [Concomitant]
     Active Substance: ALBUTEROL SULFATE
  6. NASACORT [Concomitant]
     Active Substance: TRIAMCINOLONE ACETONIDE
  7. SULFAMETHOXAZOLE AND TRIMETHOPRIM [Concomitant]
     Active Substance: SULFAMETHOXAZOLE\TRIMETHOPRIM
  8. FUROSEMIDE [Concomitant]
     Active Substance: FUROSEMIDE
  9. COENZYME Q10 [Concomitant]
     Active Substance: DIETARY SUPPLEMENT\UBIDECARENONE
  10. VITAMIN D3 [Concomitant]
     Active Substance: CHOLECALCIFEROL
  11. SODIUM CHLORIDE [Concomitant]
     Active Substance: SODIUM CHLORIDE
  12. EPINEPHRINE [Concomitant]
     Active Substance: EPINEPHRINE
  13. ROSUVASTATIN CALCIUM [Concomitant]
     Active Substance: ROSUVASTATIN CALCIUM
  14. PROLIA [Concomitant]
     Active Substance: DENOSUMAB
  15. OMEPRAZOLE [Concomitant]
     Active Substance: OMEPRAZOLE
  16. TRELEGY ELLIPTA [Concomitant]
     Active Substance: FLUTICASONE FUROATE\UMECLIDINIUM BROMIDE\VILANTEROL TRIFENATATE
  17. GABAPENTIN [Concomitant]
     Active Substance: GABAPENTIN
  18. MIRALAX [Concomitant]
     Active Substance: POLYETHYLENE GLYCOL 3350
  19. OXYGEN [Concomitant]
     Active Substance: OXYGEN
  20. KLOR-CON [Concomitant]
     Active Substance: POTASSIUM CHLORIDE
  21. HERBALS\TURMERIC [Concomitant]
     Active Substance: HERBALS\TURMERIC
  22. VITAMIN C [Concomitant]
     Active Substance: ASCORBIC ACID
  23. ELIQUIS [Concomitant]
     Active Substance: APIXABAN
  24. LYRICA [Concomitant]
     Active Substance: PREGABALIN
  25. PFIZER-BIONTECH COVID-19 VACCINE [Concomitant]
     Active Substance: TOZINAMERAN
  26. AUGMENTIN [Concomitant]
     Active Substance: AMOXICILLIN\CLAVULANATE POTASSIUM
  27. UBRELVY [Concomitant]
     Active Substance: UBROGEPANT
  28. PREDNISONE [Concomitant]
     Active Substance: PREDNISONE
  29. AZITHROMYCIN [Concomitant]
     Active Substance: AZITHROMYCIN
  30. ZONISAMIDE [Concomitant]
     Active Substance: ZONISAMIDE
  31. NEILMED SINUS RINSE [Concomitant]
     Active Substance: SODIUM BICARBONATE\SODIUM CHLORIDE
  32. MUCINEX [Concomitant]
     Active Substance: GUAIFENESIN
  33. LIDOCAINE [Concomitant]
     Active Substance: LIDOCAINE
  34. PROAIR HFA [Concomitant]
     Active Substance: ALBUTEROL SULFATE
  35. VITAMINS [Concomitant]
     Active Substance: VITAMINS
  36. PARAFFIN [Concomitant]
     Active Substance: PARAFFIN
  37. LUNESTA [Concomitant]
     Active Substance: ESZOPICLONE
  38. NM-6603 [Concomitant]
     Active Substance: NM-6603
  39. ZEMAIRA [Concomitant]
     Active Substance: .ALPHA.1-PROTEINASE INHIBITOR HUMAN
  40. MAGNESIUM [Concomitant]
     Active Substance: MAGNESIUM
  41. DIPHENHYDRAMINE HYDROCHLORIDE [Concomitant]
     Active Substance: DIPHENHYDRAMINE HYDROCHLORIDE
  42. AJOVY [Concomitant]
     Active Substance: FREMANEZUMAB-VFRM
  43. CEPHALEXIN [Concomitant]
     Active Substance: CEPHALEXIN
  44. PANTOPRAZOLE SODIUM [Concomitant]
     Active Substance: PANTOPRAZOLE SODIUM
  45. Coq [Concomitant]
  46. VYEPTI [Concomitant]
     Active Substance: EPTINEZUMAB-JJMR
  47. TORSEMIDE [Concomitant]
     Active Substance: TORSEMIDE
  48. ETHAMBUTOL HYDROCHLORIDE [Concomitant]
     Active Substance: ETHAMBUTOL HYDROCHLORIDE
  49. CLAVULANATE POTASSIUM [Concomitant]
     Active Substance: CLAVULANATE POTASSIUM
  50. RIFAMPIN [Concomitant]
     Active Substance: RIFAMPIN
  51. WARFARIN SODIUM [Concomitant]
     Active Substance: WARFARIN SODIUM
  52. CAYSTON [Concomitant]
     Active Substance: AZTREONAM

REACTIONS (21)
  - Cerebrovascular accident [Unknown]
  - Mycobacterium avium complex infection [Unknown]
  - Pneumonia pseudomonal [Unknown]
  - Bronchitis [Unknown]
  - Dyspnoea [Unknown]
  - Headache [Not Recovered/Not Resolved]
  - Haemoptysis [Unknown]
  - Pelvic pain [Not Recovered/Not Resolved]
  - Head injury [Unknown]
  - Skin laceration [Unknown]
  - Pulmonary mass [Unknown]
  - Dyspnoea exertional [Unknown]
  - Weight increased [Unknown]
  - Oedema [Unknown]
  - COVID-19 [Unknown]
  - Post procedural complication [Unknown]
  - Insurance issue [Unknown]
  - Fall [Unknown]
  - Face injury [Unknown]
  - Bacterial infection [Unknown]
  - Product dose omission issue [Unknown]

NARRATIVE: CASE EVENT DATE: 20220705
